FAERS Safety Report 5110493-2 (Version None)
Quarter: 2006Q3

REPORT INFORMATION
  Report Type: 
  Country: None (occurrence: None)
  Receive Date: 20060921
  Receipt Date: 20060912
  Transmission Date: 20061208
  Serious: Yes (Hospitalization, Other)
  Sender: FDA-Public Use
  Company Number: 2006AC01686

PATIENT
  Age: 42 Year
  Sex: Female

DRUGS (5)
  1. QUETIAPINE [Suspect]
     Indication: BIPOLAR DISORDER
     Route: 048
  2. QUETIAPINE [Interacting]
     Dosage: EXTRA DOSE TAKEN ON MORNING OF EVENT.
     Route: 048
  3. CITALOPRAM HYDROBROMIDE [Interacting]
     Indication: BIPOLAR DISORDER
  4. ALPRAZOLAM [Concomitant]
     Indication: BIPOLAR DISORDER
  5. ALPRAZOLAM [Concomitant]
     Dosage: REDUCING DOSE FOR MAINTENANCE TREATMENT FOLLOWING EVENT

REACTIONS (2)
  - DRUG INTERACTION [None]
  - SEROTONIN SYNDROME [None]
